FAERS Safety Report 7296936-7 (Version None)
Quarter: 2011Q1

REPORT INFORMATION
  Report Type: 
  Country: None (occurrence: None)
  Receive Date: 20110216
  Receipt Date: 20110209
  Transmission Date: 20110831
  Serious: Yes (Other)
  Sender: FDA-Public Use
  Company Number: GB-JNJFOC-20110203411

PATIENT
  Age: 50 Year
  Sex: Male
  Weight: 80 kg

DRUGS (4)
  1. REMICADE [Suspect]
     Indication: CROHN'S DISEASE
     Route: 042
  2. PIRITON [Concomitant]
     Indication: PREMEDICATION
  3. AZATHIOPRINE [Concomitant]
     Indication: CROHN'S DISEASE
     Route: 042
  4. VITAMIN B-12 [Concomitant]
     Indication: CROHN'S DISEASE
     Route: 030

REACTIONS (7)
  - NAUSEA [None]
  - VOMITING [None]
  - FLUSHING [None]
  - PYREXIA [None]
  - RASH [None]
  - PHARYNGEAL OEDEMA [None]
  - INFUSION RELATED REACTION [None]
